FAERS Safety Report 6017662-8 (Version None)
Quarter: 2008Q4

REPORT INFORMATION
  Report Type: 
  Country: None (occurrence: None)
  Receive Date: 20081223
  Receipt Date: 20081211
  Transmission Date: 20090506
  Serious: Yes (Death, Other)
  Sender: FDA-Public Use
  Company Number: CN-ROCHE-597645

PATIENT

DRUGS (2)
  1. MYCOPHENOLATE MOFETIL [Suspect]
     Indication: GRAFT VERSUS HOST DISEASE
     Route: 048
  2. PREDNISONE TAB [Suspect]
     Indication: GRAFT VERSUS HOST DISEASE
     Route: 065

REACTIONS (3)
  - GRAFT VERSUS HOST DISEASE [None]
  - INTERSTITIAL LUNG DISEASE [None]
  - LUNG INFECTION [None]
